FAERS Safety Report 14309305 (Version 3)
Quarter: 2018Q1

REPORT INFORMATION
  Report Type: Spontaneous
  Country: ES (occurrence: ES)
  Receive Date: 20171220
  Receipt Date: 20180205
  Transmission Date: 20180509
  Serious: Yes (Hospitalization, Other)
  Sender: FDA-Public Use
  Company Number: ES-JNJFOC-20171222483

PATIENT
  Age: 79 Year
  Sex: Female
  Weight: 65 kg

DRUGS (7)
  1. SOTALOL. [Concomitant]
     Active Substance: SOTALOL
     Route: 065
  2. ACYCLOVIR. [Concomitant]
     Active Substance: ACYCLOVIR
     Route: 065
  3. FLUVASTATIN [Concomitant]
     Active Substance: FLUVASTATIN SODIUM
     Route: 065
  4. SEGURIL [Concomitant]
     Active Substance: FUROSEMIDE
     Route: 065
  5. SINTROM [Suspect]
     Active Substance: ACENOCOUMAROL
     Indication: ATRIAL FIBRILLATION
     Route: 065
  6. IBRITUNIB [Suspect]
     Active Substance: IBRUTINIB
     Indication: CHRONIC LYMPHOCYTIC LEUKAEMIA
     Route: 048
     Dates: start: 20170314, end: 20171016
  7. DIGOXIN. [Concomitant]
     Active Substance: DIGOXIN
     Route: 065

REACTIONS (4)
  - Subdural haematoma [Recovered/Resolved]
  - Incorrect dose administered [Unknown]
  - Atrial fibrillation [Unknown]
  - Off label use [Unknown]

NARRATIVE: CASE EVENT DATE: 20170314
